FAERS Safety Report 16383468 (Version 1)
Quarter: 2019Q2

REPORT INFORMATION
  Report Type: Spontaneous
  Country: US (occurrence: US)
  Receive Date: 20190517
  Receipt Date: 20190517
  Transmission Date: 20190711
  Serious: Yes (Hospitalization)
  Sender: FDA-Public Use
  Company Number: None

PATIENT
  Age: 58 Year
  Sex: Female

DRUGS (19)
  1. OZEMPIC [Suspect]
     Active Substance: SEMAGLUTIDE
     Indication: DIABETES MELLITUS
     Dosage: ?          OTHER FREQUENCY:ONCE WEEKLY X 4;?
     Route: 058
     Dates: start: 20190328
  2. FENOFIBRATE. [Concomitant]
     Active Substance: FENOFIBRATE
  3. METHOTREXATE. [Concomitant]
     Active Substance: METHOTREXATE
  4. HUMIRA [Suspect]
     Active Substance: ADALIMUMAB
     Indication: ARTHRITIS
     Dosage: ?          OTHER FREQUENCY:ONCE WEEKLY;?
     Route: 058
     Dates: start: 20181129
  5. ATORVASTATIN [Concomitant]
     Active Substance: ATORVASTATIN
  6. VENTOLIN [Concomitant]
     Active Substance: ALBUTEROL SULFATE
  7. CARISOPRODOL. [Concomitant]
     Active Substance: CARISOPRODOL
  8. GABAPENTIN. [Concomitant]
     Active Substance: GABAPENTIN
  9. LISINOPRIL. [Concomitant]
     Active Substance: LISINOPRIL
  10. BUPROPION. [Concomitant]
     Active Substance: BUPROPION
  11. ACYCLOVIR. [Concomitant]
     Active Substance: ACYCLOVIR
  12. TRESIBA [Concomitant]
     Active Substance: INSULIN DEGLUDEC
  13. METOPROLOL SUCCINATE. [Concomitant]
     Active Substance: METOPROLOL SUCCINATE
  14. NOVOLOG [Concomitant]
     Active Substance: INSULIN ASPART
  15. OMEPRAZOLE. [Concomitant]
     Active Substance: OMEPRAZOLE
  16. DULOXETINE. [Concomitant]
     Active Substance: DULOXETINE
  17. FUROSEMIDE. [Concomitant]
     Active Substance: FUROSEMIDE
  18. LORATADINE. [Concomitant]
     Active Substance: LORATADINE
  19. LOSARTAN. [Concomitant]
     Active Substance: LOSARTAN

REACTIONS (2)
  - Surgery [None]
  - Therapy cessation [None]

NARRATIVE: CASE EVENT DATE: 20190423
